FAERS Safety Report 8357754-1 (Version None)
Quarter: 2012Q2

REPORT INFORMATION
  Report Type: 
  Country: None (occurrence: None)
  Receive Date: 20120514
  Receipt Date: 20120501
  Transmission Date: 20120825
  Serious: Yes (Other)
  Sender: FDA-Public Use
  Company Number: CA-ROCHE-GNE321389

PATIENT
  Sex: Female

DRUGS (8)
  1. VENTOLIN [Concomitant]
     Dates: start: 20110101
  2. CELEBREX [Concomitant]
     Dates: start: 20100101
  3. XOLAIR [Suspect]
     Dates: start: 20120501
  4. SYMBICORT [Concomitant]
     Dates: start: 20100101
  5. MICARDIS [Concomitant]
  6. XOLAIR [Suspect]
     Indication: ASTHMA
     Route: 058
     Dates: start: 20100831, end: 20120117
  7. SINGULAIR [Concomitant]
     Dates: start: 20110101
  8. CRESTOR [Concomitant]

REACTIONS (7)
  - LOSS OF CONSCIOUSNESS [None]
  - MALAISE [None]
  - PARAESTHESIA [None]
  - DYSPHONIA [None]
  - LYMPHADENOPATHY [None]
  - DIZZINESS [None]
  - LYMPHOCELE [None]
